FAERS Safety Report 4988884-X (Version None)
Quarter: 2006Q2

REPORT INFORMATION
  Report Type: 
  Country: None (occurrence: None)
  Receive Date: 20060425
  Receipt Date: 20060419
  Transmission Date: 20061013
  Serious: Yes (Death)
  Sender: FDA-Public Use
  Company Number: 200612013BWH

PATIENT
  Age: 77 Year
  Sex: Male

DRUGS (15)
  1. NEXAVAR [Suspect]
     Indication: RENAL CELL CARCINOMA STAGE UNSPECIFIED
     Dosage: 400 MG, BID, ORAL
     Route: 048
     Dates: start: 20060308, end: 20060317
  2. ZESTRIL [Concomitant]
  3. ATENOLOL [Concomitant]
  4. BUMEX [Concomitant]
  5. SLOW-K [Concomitant]
  6. ASPIRIN [Concomitant]
  7. CENTRUM [Concomitant]
  8. PEPCID [Concomitant]
  9. ACIDOPHYLLOUS [Concomitant]
  10. TYLENOL (CAPLET) [Concomitant]
  11. VIT B12 [Concomitant]
  12. NEURONTIN [Concomitant]
  13. CELEXA [Concomitant]
  14. MEGACE [Concomitant]
  15. DARVOCET-N 100 [Concomitant]

REACTIONS (4)
  - CLEAR CELL CARCINOMA OF THE KIDNEY [None]
  - METASTASES TO LUNG [None]
  - METASTATIC RENAL CELL CARCINOMA [None]
  - POST PROCEDURAL COMPLICATION [None]
